FAERS Safety Report 4281353-4 (Version None)
Quarter: 2004Q1

REPORT INFORMATION
  Report Type: 
  Country: None (occurrence: None)
  Receive Date: 20040129
  Receipt Date: 20040123
  Transmission Date: 20041129
  Serious: Yes (Hospitalization)
  Sender: FDA-Public Use
  Company Number: JP-ROCHE-356971

PATIENT
  Age: 20 Year
  Sex: Male

DRUGS (2)
  1. TAMIFLU [Suspect]
     Route: 048
     Dates: start: 20040120, end: 20040121
  2. LOXONIN [Concomitant]
     Route: 048

REACTIONS (1)
  - ECZEMA [None]
